FAERS Safety Report 9366272 (Version 1)
Quarter: 2013Q2

REPORT INFORMATION
  Report Type: Spontaneous
  Country: US (occurrence: US)
  Receive Date: 20130625
  Receipt Date: 20130625
  Transmission Date: 20140414
  Serious: No
  Sender: FDA-Public Use
  Company Number: US-GLAXOSMITHKLINE-A0981396A

PATIENT
  Age: 71 Year
  Sex: Male

DRUGS (4)
  1. VERAMYST [Suspect]
     Indication: UPPER-AIRWAY COUGH SYNDROME
     Dosage: 2SPR PER DAY
     Route: 045
     Dates: start: 20120613
  2. METOPROLOL [Concomitant]
  3. VITAMIN [Concomitant]
  4. AMIODARONE [Concomitant]

REACTIONS (2)
  - Nasal congestion [Unknown]
  - Drug ineffective [Unknown]
